FAERS Safety Report 24044597 (Version 1)
Quarter: 2024Q3

REPORT INFORMATION
  Report Type: Spontaneous
  Country: JP (occurrence: JP)
  Receive Date: 20240703
  Receipt Date: 20240703
  Transmission Date: 20241016
  Serious: Yes (Death)
  Sender: GLAXOSMITHKLINE
  Company Number: JP-TAKEDA-2024TJP009896

PATIENT

DRUGS (1)
  1. ZEJULA [Suspect]
     Active Substance: NIRAPARIB
     Indication: Ovarian cancer
     Dosage: 200 MG, QD(200 MILLIGRAM, QD)
     Route: 048

REACTIONS (2)
  - Infection [Fatal]
  - Platelet count decreased [Fatal]
